FAERS Safety Report 8730254 (Version 7)
Quarter: 2013Q3

REPORT INFORMATION
  Report Type: Spontaneous
  Country: US (occurrence: US)
  Receive Date: 20120817
  Receipt Date: 20130724
  Transmission Date: 20140515
  Serious: Yes (Hospitalization, Other)
  Sender: FDA-Public Use
  Company Number: US-009507513-1207USA000385

PATIENT
  Sex: Female

DRUGS (9)
  1. FOSAMAX [Suspect]
     Indication: OSTEOPOROSIS
     Dosage: UNK
     Route: 048
     Dates: start: 1999, end: 200909
  2. FOSAMAX [Suspect]
     Indication: BONE LOSS
     Dosage: 70 MG, QW
     Route: 048
     Dates: end: 200810
  3. FOSAMAX [Suspect]
     Dosage: 10 MG, UNK
     Route: 048
     Dates: start: 20000129
  4. FOSAMAX PLUS D [Suspect]
     Dosage: 70 MG, UNK
     Route: 048
  5. ALENDRONATE SODIUM [Suspect]
     Indication: OSTEOPOROSIS
     Dosage: 70 MG, QW
     Dates: start: 20081023, end: 200909
  6. ALENDRONATE SODIUM [Suspect]
     Indication: BONE LOSS
  7. BONIVA [Suspect]
     Indication: OSTEOPOROSIS
     Dosage: 150 MG, MONTHLY
     Route: 048
     Dates: start: 20090923, end: 201203
  8. BONIVA [Suspect]
     Indication: BONE LOSS
  9. VITAMIN D (UNSPECIFIED) [Concomitant]
     Indication: OSTEOPOROSIS
     Dosage: 400 IU, QD
     Route: 048

REACTIONS (29)
  - Internal fixation of fracture [Unknown]
  - Pyelonephritis acute [Recovering/Resolving]
  - Internal fixation of fracture [Unknown]
  - Device dislocation [Unknown]
  - Internal fixation of fracture [Unknown]
  - Kidney infection [Unknown]
  - Femur fracture [Unknown]
  - Femur fracture [Unknown]
  - Low turnover osteopathy [Unknown]
  - Foot fracture [Unknown]
  - Foot fracture [Unknown]
  - Dental prosthesis placement [Unknown]
  - Dental prosthesis placement [Unknown]
  - Vitamin D deficiency [Unknown]
  - Hyperlipidaemia [Unknown]
  - Facial spasm [Unknown]
  - Osteoarthritis [Unknown]
  - Hypothyroidism [Unknown]
  - Migraine [Unknown]
  - Sleep disorder [Unknown]
  - Measles [Unknown]
  - Mumps [Unknown]
  - Varicella [Unknown]
  - Cystitis [Unknown]
  - Fatigue [Unknown]
  - Blood pressure increased [Unknown]
  - Spinal osteoarthritis [Unknown]
  - Abdominal discomfort [Unknown]
  - Dyspepsia [Unknown]
